FAERS Safety Report 26182565 (Version 1)
Quarter: 2025Q4

REPORT INFORMATION
  Report Type: Spontaneous
  Country: US (occurrence: US)
  Receive Date: 20251221
  Receipt Date: 20251221
  Transmission Date: 20260118
  Serious: No
  Sender: ACCORD
  Company Number: US-COHERUS BIOSCIENCES, INC-2025-COH-US000450

PATIENT
  Age: 73 Year
  Sex: Female

DRUGS (3)
  1. UDENYCA [Suspect]
     Active Substance: PEGFILGRASTIM-CBQV
     Indication: Infection prophylaxis
     Dosage: 6 MG
     Route: 058
  2. UDENYCA [Suspect]
     Active Substance: PEGFILGRASTIM-CBQV
     Indication: Infection prophylaxis
     Dosage: 6 MG
     Route: 058
  3. UDENYCA [Suspect]
     Active Substance: PEGFILGRASTIM-CBQV
     Indication: Infection prophylaxis
     Dosage: 6 MG
     Route: 058
     Dates: start: 20250516

REACTIONS (3)
  - Presyncope [Recovered/Resolved]
  - Device adhesion issue [Unknown]
  - Device malfunction [Unknown]

NARRATIVE: CASE EVENT DATE: 20250516
